FAERS Safety Report 6336497-X (Version None)
Quarter: 2009Q3

REPORT INFORMATION
  Report Type: 
  Country: None (occurrence: None)
  Receive Date: 20090901
  Receipt Date: 20090826
  Transmission Date: 20100115
  Serious: Yes (Hospitalization)
  Sender: FDA-Public Use
  Company Number: FR-AVENTIS-200913206FR

PATIENT
  Age: 25 Year
  Sex: Female
  Weight: 45 kg

DRUGS (6)
  1. RIFADIN [Suspect]
     Indication: DISSEMINATED TUBERCULOSIS
     Route: 048
     Dates: start: 20090428, end: 20090510
  2. RIFADIN [Suspect]
     Route: 048
     Dates: start: 20090520
  3. RIMIFON [Suspect]
     Indication: DISSEMINATED TUBERCULOSIS
     Route: 048
     Dates: start: 20090428, end: 20090510
  4. RIMIFON [Suspect]
     Route: 048
     Dates: start: 20090510
  5. AMIKLIN                            /00391001/ [Concomitant]
     Indication: DISSEMINATED TUBERCULOSIS
     Dates: start: 20090427, end: 20090520
  6. MYAMBUTOL [Concomitant]
     Indication: DISSEMINATED TUBERCULOSIS
     Dates: start: 20090428

REACTIONS (1)
  - HEPATITIS CHOLESTATIC [None]
